FAERS Safety Report 19274733 (Version 1)
Quarter: 2021Q2

REPORT INFORMATION
  Report Type: Spontaneous
  Country: GB (occurrence: GB)
  Receive Date: 20210519
  Receipt Date: 20210519
  Transmission Date: 20210717
  Serious: Yes (Other)
  Sender: FDA-Public Use
  Company Number: GB-PFIZER INC-2021519418

PATIENT
  Age: 41 Year
  Sex: Male
  Weight: 79.82 kg

DRUGS (1)
  1. SILDENAFIL PFIZER [Suspect]
     Active Substance: SILDENAFIL
     Indication: ILL-DEFINED DISORDER
     Dosage: UNK
     Route: 051
     Dates: start: 20210423

REACTIONS (3)
  - Influenza [Not Recovered/Not Resolved]
  - Headache [Not Recovered/Not Resolved]
  - Off label use [Unknown]

NARRATIVE: CASE EVENT DATE: 20210423
